FAERS Safety Report 8569862 (Version 2)
Quarter: 2013Q3

REPORT INFORMATION
  Report Type: Spontaneous
  Country: US (occurrence: US)
  Receive Date: 20120518
  Receipt Date: 20130918
  Transmission Date: 20140515
  Serious: No
  Sender: FDA-Public Use
  Company Number: US-ASTRAZENECA-2012SE30669

PATIENT
  Age: 55 Year
  Sex: Female
  Weight: 81.2 kg

DRUGS (3)
  1. NEXIUM [Suspect]
     Indication: DYSPEPSIA
     Route: 048
     Dates: start: 20130904
  2. PULMICORT FLEXHALER [Suspect]
     Route: 055
  3. SYMBICORT PMDI [Suspect]
     Route: 055

REACTIONS (4)
  - Dyspnoea [Unknown]
  - Oesophageal ulcer [Unknown]
  - Intentional drug misuse [Unknown]
  - Off label use [Unknown]
